FAERS Safety Report 10993654 (Version 1)
Quarter: 2015Q2

REPORT INFORMATION
  Report Type: Spontaneous
  Country: IT (occurrence: None)
  Receive Date: 20150403
  Receipt Date: 20150403
  Transmission Date: 20150821
  Serious: Yes (Life-Threatening)
  Sender: FDA-Public Use
  Company Number: FK201501588

PATIENT
  Sex: Male

DRUGS (1)
  1. PROPOFOL 2% MCT FRESENIUS (PROPOFOL) (PROPOFOL) [Suspect]
     Active Substance: PROPOFOL
     Indication: SEDATION
     Dosage: 180 ML, 1 IN 1 TOTAL, INTRAVENOUS (NOT OTHERWISE SPECIFIED)
     Dates: start: 20150324, end: 20150324

REACTIONS (4)
  - Shock [None]
  - Rhabdomyolysis [None]
  - Lactic acidosis [None]
  - Myoglobin blood increased [None]

NARRATIVE: CASE EVENT DATE: 20150324
